FAERS Safety Report 9748332 (Version 1)
Quarter: 2013Q4

REPORT INFORMATION
  Report Type: Report from Study
  Country: US (occurrence: US)
  Receive Date: 20131212
  Receipt Date: 20131212
  Transmission Date: 20140711
  Serious: No
  Sender: FDA-Public Use
  Company Number: PHEH2013US025528

PATIENT
  Age: 59 Year
  Sex: Male
  Weight: 92.97 kg

DRUGS (7)
  1. TASIGNA [Suspect]
     Dosage: 200 MG, BID
  2. HYDROMORPHON AL [Concomitant]
     Dosage: 2 MG, UNK
  3. ASPIRIN [Concomitant]
     Dosage: 325 MG, UNK
  4. DIGOXIN [Concomitant]
     Dosage: 0.125 MG, UNK
  5. HYDROCODONE/APAP [Concomitant]
     Dosage: 7.5/325 MG
  6. PROPAFENONE [Concomitant]
     Dosage: 150 MG, UNK
  7. OMEPRAZOLE [Concomitant]
     Dosage: 20.6 MG, UNK
     Route: 048

REACTIONS (1)
  - Fluid retention [Unknown]
